FAERS Safety Report 11285709 (Version 2)
Quarter: 2015Q3

REPORT INFORMATION
  Report Type: Spontaneous
  Country: US (occurrence: US)
  Receive Date: 20150721
  Receipt Date: 20150829
  Transmission Date: 20151125
  Serious: Yes (Other)
  Sender: FDA-Public Use
  Company Number: US-AMGEN-USASP2015063833

PATIENT
  Age: 92 Year
  Sex: Female
  Weight: 48.73 kg

DRUGS (7)
  1. SERTRALINE [Concomitant]
     Active Substance: SERTRALINE HYDROCHLORIDE
     Dosage: 50 MG, QD AS NECESSARY
     Route: 048
     Dates: start: 20140218
  2. PROLIA [Suspect]
     Active Substance: DENOSUMAB
     Indication: OSTEOPOROSIS POSTMENOPAUSAL
     Dosage: 60 MG, Q6MO
     Route: 058
     Dates: start: 20140509
  3. PROAIR HFA [Concomitant]
     Active Substance: ALBUTEROL SULFATE
     Dosage: 108 MUG, Q 4-6 TIMES AS NECESSARY
     Route: 048
     Dates: start: 20140521
  4. VITAMIN E [Concomitant]
     Active Substance: .ALPHA.-TOCOPHEROL
  5. ASCORBIC ACID. [Concomitant]
     Active Substance: ASCORBIC ACID
  6. TYLENOL [Concomitant]
     Active Substance: ACETAMINOPHEN
     Indication: PAIN
  7. COLACE [Concomitant]
     Active Substance: DOCUSATE SODIUM
     Dosage: 100 MG, BID AS NECESSARY
     Route: 048

REACTIONS (6)
  - Intraductal proliferative breast lesion [Unknown]
  - Inappropriate schedule of drug administration [Unknown]
  - Post procedural haematoma [Unknown]
  - Invasive ductal breast carcinoma [Unknown]
  - Hearing aid user [Unknown]
  - Joint range of motion decreased [Unknown]
